FAERS Safety Report 11865791 (Version 2)
Quarter: 2016Q3

REPORT INFORMATION
  Report Type: Spontaneous
  Country: IT (occurrence: IT)
  Receive Date: 20151223
  Receipt Date: 20160902
  Transmission Date: 20161109
  Serious: Yes (Other)
  Sender: FDA-Public Use
  Company Number: IT-BRISTOL-MYERS SQUIBB COMPANY-BMS-2015-088746

PATIENT
  Age: 11 Year
  Sex: Male
  Weight: 40 kg

DRUGS (1)
  1. ABILIFY [Suspect]
     Active Substance: ARIPIPRAZOLE
     Indication: TOURETTE^S DISORDER
     Dosage: 10 MG, QD
     Route: 048
     Dates: start: 20150923, end: 20151211

REACTIONS (7)
  - Chest pain [Recovered/Resolved]
  - Dyspnoea [Recovering/Resolving]
  - Fumbling [Recovering/Resolving]
  - Product use issue [Unknown]
  - Electrocardiogram QT prolonged [Recovering/Resolving]
  - Sinus bradycardia [Recovered/Resolved]
  - Drug administered to patient of inappropriate age [Unknown]

NARRATIVE: CASE EVENT DATE: 20151029
